FAERS Safety Report 10850608 (Version 1)
Quarter: 2015Q1

REPORT INFORMATION
  Report Type: Spontaneous
  Country: US (occurrence: US)
  Receive Date: 20150222
  Receipt Date: 20150222
  Transmission Date: 20150721
  Serious: No
  Sender: FDA-Public Use
  Company Number: US-ALLERGAN-1403319US

PATIENT
  Age: 63 Year
  Sex: Female

DRUGS (1)
  1. BOTOX [Suspect]
     Active Substance: ONABOTULINUMTOXINA
     Indication: MIGRAINE
     Dosage: 125 UNITS, SINGLE
     Route: 030

REACTIONS (2)
  - Loss of bladder sensation [Unknown]
  - Urinary incontinence [Unknown]
